FAERS Safety Report 15484012 (Version 1)
Quarter: 2018Q4

REPORT INFORMATION
  Report Type: Spontaneous
  Country: US (occurrence: US)
  Receive Date: 20181010
  Receipt Date: 20181010
  Transmission Date: 20190205
  Serious: No
  Sender: FDA-Public Use
  Company Number: US-ASTRAZENECA-2018SF16693

PATIENT
  Sex: Female
  Weight: 93 kg

DRUGS (2)
  1. BYDUREON BCISE [Suspect]
     Active Substance: EXENATIDE
     Indication: GLUCOSE TOLERANCE IMPAIRED
     Route: 058
     Dates: start: 20180820
  2. BYDUREON BCISE [Suspect]
     Active Substance: EXENATIDE
     Indication: APPETITE DISORDER
     Route: 058
     Dates: start: 20180820

REACTIONS (4)
  - Product use in unapproved indication [Not Recovered/Not Resolved]
  - Injection site nodule [Not Recovered/Not Resolved]
  - Injection site pruritus [Not Recovered/Not Resolved]
  - Off label use [Not Recovered/Not Resolved]
